FAERS Safety Report 5294539-7 (Version None)
Quarter: 2007Q2

REPORT INFORMATION
  Report Type: 
  Country: None (occurrence: None)
  Receive Date: 20070409
  Receipt Date: 20070409
  Transmission Date: 20071010
  Serious: Yes (Hospitalization, Congenital Anomaly)
  Sender: FDA-Public Use
  Company Number: None

PATIENT
  Age: 29 Year
  Sex: Female
  Weight: 78.0187 kg

DRUGS (1)
  1. PAXIL [Suspect]
     Indication: DEATH OF RELATIVE
     Dosage: 1 TABLET ONCE A DAY PO
     Route: 048
     Dates: start: 20030525, end: 20070327

REACTIONS (5)
  - DRUG EXPOSURE BEFORE PREGNANCY [None]
  - DRUG EXPOSURE DURING PREGNANCY [None]
  - MALAISE [None]
  - PREGNANCY [None]
  - PREMATURE BABY [None]
